FAERS Safety Report 6404119-5 (Version None)
Quarter: 2009Q4

REPORT INFORMATION
  Report Type: 
  Country: None (occurrence: None)
  Receive Date: 20091016
  Receipt Date: 20090917
  Transmission Date: 20100525
  Serious: No
  Sender: FDA-Public Use
  Company Number: US-ALEXION-A200900768

PATIENT
  Sex: Female

DRUGS (5)
  1. SOLIRIS [Suspect]
     Indication: PAROXYSMAL NOCTURNAL HAEMOGLOBINURIA
     Dosage: 600 MG
     Route: 042
     Dates: start: 20090912
  2. VITAMIN B12                        /00056201/ [Concomitant]
     Dosage: 1 X MONTH
  3. PROTONIX                           /01263201/ [Concomitant]
     Dosage: 40 MG QD
     Route: 048
  4. PEPCID [Concomitant]
     Dosage: 20 MG QD
     Route: 048
  5. FOLIC ACID [Concomitant]
     Dosage: 1 MG QD
     Route: 048

REACTIONS (2)
  - FATIGUE [None]
  - LYMPHADENOPATHY [None]
